FAERS Safety Report 9676106 (Version 1)
Quarter: 2013Q4

REPORT INFORMATION
  Report Type: Spontaneous
  Country: US (occurrence: US)
  Receive Date: 20131107
  Receipt Date: 20131107
  Transmission Date: 20140711
  Serious: Yes (Hospitalization)
  Sender: FDA-Public Use
  Company Number: US-ROXANE LABORATORIES, INC.-2013-RO-01787RO

PATIENT
  Age: 55 Year
  Sex: Male
  Weight: 100 kg

DRUGS (2)
  1. AMLODIPINE [Suspect]
  2. LABETALOL [Suspect]

REACTIONS (4)
  - Overdose [Recovered/Resolved]
  - Cardiotoxicity [Recovered/Resolved]
  - Hypotension [Recovered/Resolved]
  - Renal failure acute [Unknown]
